FAERS Safety Report 8000487-1 (Version None)
Quarter: 2011Q4

REPORT INFORMATION
  Report Type: 
  Country: None (occurrence: None)
  Receive Date: 20111123
  Receipt Date: 20111011
  Transmission Date: 20120403
  Serious: Yes (Hospitalization)
  Sender: FDA-Public Use
  Company Number: 331583

PATIENT
  Age: 64 Year
  Sex: Female
  Weight: 82.5 kg

DRUGS (8)
  1. ASPIRIN [Concomitant]
  2. LISINOPRIL [Concomitant]
  3. MULTIVITAMIN /00097801/ (ASCORBIC ACID, CALCIUM PANTOTHENATE, ERGOCALC [Concomitant]
  4. SIMVASTATIN [Concomitant]
  5. LEVOTHYROXINE SODIUM [Concomitant]
  6. METFORMIN HCL [Concomitant]
  7. VICTOZA [Suspect]
     Indication: TYPE 2 DIABETES MELLITUS
     Dosage: 1.8 MG, QD, SUBCUTANEOUS
     Route: 058
     Dates: end: 20110815
  8. OMEPRAZOLE [Concomitant]

REACTIONS (2)
  - URINARY TRACT INFECTION [None]
  - PANCREATITIS ACUTE [None]
